FAERS Safety Report 8849453 (Version 1)
Quarter: 2012Q4

REPORT INFORMATION
  Report Type: Spontaneous
  Country: US (occurrence: None)
  Receive Date: 20121017
  Receipt Date: 20121017
  Transmission Date: 20130627
  Serious: Yes (Other)
  Sender: FDA-Public Use
  Company Number: 2012AP003345

PATIENT
  Sex: Female

DRUGS (2)
  1. PAROXETINE HCL TABLETS [Suspect]
     Indication: DEPRESSION
     Dates: end: 201006
  2. PAXIL [Suspect]
     Dates: end: 201006

REACTIONS (6)
  - Emotional distress [None]
  - Anxiety [None]
  - Quality of life decreased [None]
  - Aortic valve incompetence [None]
  - Mitral valve disease mixed [None]
  - Cardiac failure congestive [None]
